FAERS Safety Report 21121915 (Version 2)
Quarter: 2022Q3

REPORT INFORMATION
  Report Type: Spontaneous
  Country: US (occurrence: US)
  Receive Date: 20220722
  Receipt Date: 20220911
  Transmission Date: 20221027
  Serious: No
  Sender: FDA-Public Use
  Company Number: US-SA-SAC20220718000853

PATIENT
  Age: 34 Year
  Sex: Female
  Weight: 78 kg

DRUGS (14)
  1. DUPIXENT [Suspect]
     Active Substance: DUPILUMAB
     Indication: Dermatitis allergic
     Dosage: 600 MG, 1X
     Route: 058
     Dates: start: 20220630, end: 20220630
  2. DUPIXENT [Suspect]
     Active Substance: DUPILUMAB
     Dosage: 300 MG QOW
     Dates: start: 202207
  3. CICLOPIROX [Concomitant]
     Active Substance: CICLOPIROX
     Dosage: UNK
  4. CLOBETASOL [Concomitant]
     Active Substance: CLOBETASOL
     Dosage: UNK
  5. HYDROXYZINE [Concomitant]
     Active Substance: HYDROXYZINE HYDROCHLORIDE
     Dosage: UNK
  6. LORATADINE [Concomitant]
     Active Substance: LORATADINE
     Dosage: UNK
  7. VITAMINS NOS [Concomitant]
     Active Substance: VITAMINS
     Dosage: UNK, QD
  8. MULTIGEN PLUS [Concomitant]
     Dosage: UNK
  9. PRILOSEC [Concomitant]
     Active Substance: OMEPRAZOLE MAGNESIUM
     Dosage: UNK
  10. QBREXZA [Concomitant]
     Active Substance: GLYCOPYRRONIUM TOSYLATE
     Dosage: UNK
  11. SERTRALINE [Concomitant]
     Active Substance: SERTRALINE HYDROCHLORIDE
     Dosage: UNK
  12. TYLENOL [Concomitant]
     Active Substance: ACETAMINOPHEN
     Dosage: UNK
  13. TRIAMCINOLONE ACETONIDE [Concomitant]
     Active Substance: TRIAMCINOLONE ACETONIDE
     Dosage: UNK
  14. ALLERGY RELIEF [LORATADINE] [Concomitant]
     Dosage: UNK

REACTIONS (6)
  - Pruritus [Recovering/Resolving]
  - Dry skin [Unknown]
  - Eczema [Recovered/Resolved]
  - Skin exfoliation [Recovered/Resolved]
  - Rash [Recovered/Resolved]
  - Product use in unapproved indication [Unknown]

NARRATIVE: CASE EVENT DATE: 20220630
